FAERS Safety Report 6866200-6 (Version None)
Quarter: 2010Q3

REPORT INFORMATION
  Report Type: 
  Country: None (occurrence: None)
  Receive Date: 20100722
  Receipt Date: 20100716
  Transmission Date: 20110219
  Serious: Yes (Other)
  Sender: FDA-Public Use
  Company Number: ES-ASTRAZENECA-2010SE33651

PATIENT
  Age: 46 Year
  Sex: Male

DRUGS (5)
  1. ATACAND HCT [Suspect]
     Indication: HYPERTENSION
     Dosage: 32 MG+25 MG, 28 TABLETS, 1 DF DAILY
     Route: 048
     Dates: start: 20100511, end: 20100517
  2. PANTOPRAZOL [Concomitant]
     Indication: HYPERTENSION
     Route: 048
     Dates: start: 20100101
  3. ADVENTAN [Concomitant]
     Route: 061
     Dates: start: 20100505
  4. KALETRA [Concomitant]
     Indication: HIV INFECTION
     Dosage: 60 TABLETS, 100MG/25MG
     Route: 048
  5. TRUVADA [Concomitant]
     Indication: HIV INFECTION
     Dosage: 30 TABLETS, 200 MG/245 MG
     Route: 048

REACTIONS (2)
  - DIZZINESS [None]
  - SWOLLEN TONGUE [None]
